FAERS Safety Report 15651437 (Version 4)
Quarter: 2019Q2

REPORT INFORMATION
  Report Type: Spontaneous
  Country: US (occurrence: US)
  Receive Date: 20181123
  Receipt Date: 20190624
  Transmission Date: 20190711
  Serious: Yes (Other)
  Sender: FDA-Public Use
  Company Number: US-SA-2018SA320225

PATIENT
  Age: 46 Year
  Sex: Male
  Weight: 83.9 kg

DRUGS (21)
  1. CYMBALTA [Concomitant]
     Active Substance: DULOXETINE HYDROCHLORIDE
     Dosage: 60 MG (AS DIRECTED)
     Route: 048
     Dates: start: 20181003
  2. ASPIRIN [ACETYLSALICYLIC ACID] [Concomitant]
     Active Substance: ASPIRIN
     Dosage: 81 MG, QD
     Dates: start: 20130304
  3. SODIUM CHLORIDE. [Concomitant]
     Active Substance: SODIUM CHLORIDE
     Indication: FLUSHING
     Dosage: 0.9 % (AS DIRECTED)
     Route: 042
     Dates: start: 20180920
  4. DEPAKOTE [Concomitant]
     Active Substance: DIVALPROEX SODIUM
     Dosage: 1000 MG QPM
     Route: 048
     Dates: start: 20170622
  5. VENTOLIN [Concomitant]
     Active Substance: ALBUTEROL SULFATE
     Dosage: 1 DF, PRN
     Route: 065
     Dates: start: 20150619
  6. CALCIUM [Concomitant]
     Active Substance: CALCIUM
     Dosage: 600 MG, QD
     Route: 048
     Dates: start: 20150619
  7. MAGNESIUM CITRATE. [Concomitant]
     Active Substance: MAGNESIUM CITRATE
     Dosage: 1 DF(BOTTLE), PRN
     Route: 065
     Dates: start: 20190611
  8. AMITRIPTYLINE [Concomitant]
     Active Substance: AMITRIPTYLINE
     Dosage: 25 MG (AS DIRECTED)
     Route: 048
     Dates: start: 20181017
  9. MULTIVITAMINS [VITAMINS NOS] [Concomitant]
     Active Substance: VITAMINS
     Dosage: 1 DF, QD
     Route: 048
     Dates: start: 20180715
  10. NORMAL SALINE [Concomitant]
     Active Substance: SODIUM CHLORIDE
     Indication: FLUSHING
     Dosage: 0.9 % (AS DIRECTED)
     Route: 042
     Dates: start: 20180920
  11. MACROBID [Concomitant]
     Active Substance: NITROFURANTOIN\NITROFURANTOIN MONOHYDRATE
     Dosage: 100 MG, BID
     Route: 065
     Dates: start: 20190530
  12. FABRAZYME [Suspect]
     Active Substance: AGALSIDASE BETA
     Indication: FABRY^S DISEASE
     Dosage: 80 MG
     Route: 041
     Dates: start: 20180920
  13. DIPHENHYDRAMINE. [Concomitant]
     Active Substance: DIPHENHYDRAMINE
     Indication: ANAPHYLACTIC REACTION
     Dosage: 25 MG, PRN
     Route: 048
     Dates: start: 20180920
  14. STERILE WATER [Concomitant]
     Active Substance: WATER
     Dosage: 16 ML (AS DIRECTED)
     Route: 042
     Dates: start: 20180920
  15. LYRICA [Concomitant]
     Active Substance: PREGABALIN
     Dosage: 150 MG, TID
     Route: 048
     Dates: start: 20180807
  16. DRONABINOL. [Concomitant]
     Active Substance: DRONABINOL
     Dosage: 1 DF AS DIRECTED
     Route: 065
     Dates: start: 20160520
  17. SIMVASTATIN. [Concomitant]
     Active Substance: SIMVASTATIN
     Dosage: 10 MG, QD
     Dates: start: 20130304
  18. FABRAZYME [Suspect]
     Active Substance: AGALSIDASE BETA
     Indication: LIPIDOSIS
     Dosage: 0.95 MG/KG, QOW
     Route: 041
     Dates: start: 20110104
  19. EPINEPHRINE. [Concomitant]
     Active Substance: EPINEPHRINE
     Indication: ANAPHYLACTIC REACTION
     Dosage: 0.3 MG, PRN
     Route: 030
     Dates: start: 20180920
  20. LMX [LIDOCAINE] [Concomitant]
     Indication: PREMEDICATION
     Dosage: 4 % PTI
     Route: 061
     Dates: start: 20180920
  21. IBUPROFEN. [Concomitant]
     Active Substance: IBUPROFEN
     Dosage: 200 MG, PRN
     Route: 048
     Dates: start: 20180111

REACTIONS (6)
  - Chills [Unknown]
  - Influenza like illness [Unknown]
  - Urinary tract infection [Unknown]
  - Dysuria [Unknown]
  - Enterovesical fistula [Unknown]
  - Pain [Unknown]
